FAERS Safety Report 6286745-X (Version None)
Quarter: 2009Q3

REPORT INFORMATION
  Report Type: 
  Country: None (occurrence: None)
  Receive Date: 20090724
  Receipt Date: 20090710
  Transmission Date: 20100115
  Serious: Yes (Life-Threatening, Hospitalization)
  Sender: FDA-Public Use
  Company Number: 8048324

PATIENT
  Age: 50 Year
  Sex: Female

DRUGS (5)
  1. KEPPRA [Suspect]
     Indication: EPILEPSY
     Dosage: 1000 MG 2/D PO
     Route: 048
     Dates: start: 20090528, end: 20090625
  2. VALPROATE SODIUM [Suspect]
     Indication: EPILEPSY
     Dosage: 600 MG 2/D PO
     Route: 048
     Dates: end: 20090615
  3. DEXAMETHASONE [Concomitant]
  4. LASIX [Concomitant]
  5. FLUCONAZOLE [Concomitant]

REACTIONS (2)
  - ANAEMIA [None]
  - PANCYTOPENIA [None]
